FAERS Safety Report 5623917-9 (Version None)
Quarter: 2008Q1

REPORT INFORMATION
  Report Type: 
  Country: None (occurrence: None)
  Receive Date: 20080207
  Receipt Date: 20080201
  Transmission Date: 20080703
  Serious: Yes (Death)
  Sender: FDA-Public Use
  Company Number: 167-21880-08020037

PATIENT

DRUGS (1)
  1. REVLIMID [Suspect]
     Indication: 5Q-SYNDROME
     Dosage: 5 MG, DAILY, ORAL
     Route: 048
     Dates: start: 20071102, end: 20071113

REACTIONS (1)
  - CEREBROVASCULAR ACCIDENT [None]
